FAERS Safety Report 6729672-3 (Version None)
Quarter: 2010Q2

REPORT INFORMATION
  Report Type: 
  Country: None (occurrence: None)
  Receive Date: 20100518
  Receipt Date: 20100506
  Transmission Date: 20101027
  Serious: Yes (Other)
  Sender: FDA-Public Use
  Company Number: US-JNJFOC-20100503350

PATIENT
  Sex: Female
  Weight: 71 kg

DRUGS (20)
  1. GOLIMUMAB [Suspect]
     Indication: RHEUMATOID ARTHRITIS
     Route: 058
  2. GOLIMUMAB [Suspect]
     Route: 058
  3. ATENOLOL [Concomitant]
     Indication: HYPERTENSION
     Route: 048
  4. LISINOPRIL [Concomitant]
     Indication: HYPERTENSION
     Route: 048
  5. HYDROCHLOROTHIAZIDE [Concomitant]
     Indication: HYPERTENSION
     Route: 048
  6. PAXIL [Concomitant]
     Indication: DEPRESSION
     Route: 048
  7. DARVOCET-N 100 [Concomitant]
     Indication: RHEUMATOID ARTHRITIS
     Route: 048
  8. ZETIA [Concomitant]
     Indication: HYPERLIPIDAEMIA
     Route: 048
  9. DETROL LA [Concomitant]
     Indication: HYPERTONIC BLADDER
     Route: 048
  10. VICODIN [Concomitant]
     Indication: SCIATICA
     Route: 048
  11. FOLIC ACID [Concomitant]
     Indication: MEDICAL DIET
     Route: 048
  12. NEURONTIN [Concomitant]
     Indication: MUSCLE SPASMS
     Route: 048
  13. METHOTREXATE [Concomitant]
     Indication: RHEUMATOID ARTHRITIS
     Route: 048
  14. FOSAMAX PLUS D [Concomitant]
     Indication: OSTEOPOROSIS
     Route: 048
  15. PREDNISONE [Concomitant]
     Indication: RHEUMATOID ARTHRITIS
     Route: 048
  16. TRAMADOL HYDROCHLORIDE AND ACETAMINOPHEN [Concomitant]
     Indication: RHEUMATOID ARTHRITIS
     Route: 048
  17. KDUR [Concomitant]
     Indication: HYPOKALAEMIA
     Route: 048
  18. VITAMIN B-12 [Concomitant]
     Indication: VITAMIN B12 DEFICIENCY
     Route: 030
  19. OMEPRAZOLE [Concomitant]
     Indication: GASTROOESOPHAGEAL REFLUX DISEASE
     Route: 048
  20. RANITIDINE [Concomitant]
     Indication: GASTROOESOPHAGEAL REFLUX DISEASE
     Route: 048

REACTIONS (1)
  - SCLERODERMA [None]
